FAERS Safety Report 9859897 (Version 1)
Quarter: 2014Q1

REPORT INFORMATION
  Report Type: Spontaneous
  Country: US (occurrence: US)
  Receive Date: 20140131
  Receipt Date: 20140131
  Transmission Date: 20141002
  Serious: Yes (Other)
  Sender: FDA-Public Use
  Company Number: US-TEVA-457628USA

PATIENT
  Sex: Male
  Weight: 78.09 kg

DRUGS (10)
  1. PROVIGIL [Suspect]
     Indication: SLEEP APNOEA SYNDROME
     Route: 048
     Dates: end: 201308
  2. PROVIGIL [Suspect]
     Indication: NARCOLEPSY
  3. NUVIGIL [Suspect]
  4. MODAFINIL [Concomitant]
     Indication: SLEEP APNOEA SYNDROME
     Dosage: 200 MILLIGRAM DAILY;
  5. MODAFINIL [Concomitant]
     Indication: NARCOLEPSY
  6. OXYCODONE [Concomitant]
     Indication: MULTIPLE SCLEROSIS
     Dosage: 22.5 MILLIGRAM DAILY;
  7. GABAPENTIN [Concomitant]
     Indication: MULTIPLE SCLEROSIS
     Dosage: 1600 MILLIGRAM DAILY;
  8. ABILIFY [Concomitant]
     Indication: BACK PAIN
  9. TYSABRI [Concomitant]
     Indication: MULTIPLE SCLEROSIS
  10. FENOFIBRATE [Concomitant]
     Indication: BLOOD TRIGLYCERIDES INCREASED

REACTIONS (4)
  - Renal impairment [Unknown]
  - Insomnia [Recovered/Resolved]
  - Nervousness [Recovered/Resolved]
  - Drug administration error [Unknown]
